FAERS Safety Report 16829771 (Version 4)
Quarter: 2020Q2

REPORT INFORMATION
  Report Type: Report from Study
  Country: US (occurrence: US)
  Receive Date: 20190919
  Receipt Date: 20200526
  Transmission Date: 20200713
  Serious: Yes (Hospitalization)
  Sender: FDA-Public Use
  Company Number: US-ACTELION-A-NJ2019-195571

PATIENT
  Age: 72 Year
  Sex: Female

DRUGS (20)
  1. SILDENAFIL. [Suspect]
     Active Substance: SILDENAFIL
     Indication: PULMONARY HYPERTENSION
     Dosage: 20 MG, TID
     Route: 065
     Dates: start: 20190309
  2. AMLODIPINE [Concomitant]
     Active Substance: AMLODIPINE BESYLATE
  3. ATORVASTATIN [Concomitant]
     Active Substance: ATORVASTATIN
  4. CLOPIDOGREL [Concomitant]
     Active Substance: CLOPIDOGREL BISULFATE
  5. OPSUMIT [Suspect]
     Active Substance: MACITENTAN
     Indication: PULMONARY ARTERIAL HYPERTENSION
     Dosage: 10 MG, QD
     Route: 048
     Dates: start: 20170726
  6. CEFUROXIME. [Concomitant]
     Active Substance: CEFUROXIME
  7. LEVOTHYROXIN [Concomitant]
     Active Substance: LEVOTHYROXINE
  8. METFORMIN [Concomitant]
     Active Substance: METFORMIN HYDROCHLORIDE
  9. ALLOPURINOL. [Concomitant]
     Active Substance: ALLOPURINOL
  10. GUIATUSS [Concomitant]
     Active Substance: GUAIFENESIN
  11. POTASSIUM CHLORIDE. [Concomitant]
     Active Substance: POTASSIUM CHLORIDE
  12. SOTALOL. [Concomitant]
     Active Substance: SOTALOL
  13. SPIRONOLACTON [Concomitant]
     Active Substance: SPIRONOLACTONE
  14. METOPROLOL. [Concomitant]
     Active Substance: METOPROLOL
  15. ISOSORBIDE. [Concomitant]
     Active Substance: ISOSORBIDE
  16. BUMETANIDE. [Concomitant]
     Active Substance: BUMETANIDE
  17. CLOPIDEL [Concomitant]
  18. DOXICYCLIN [Concomitant]
     Active Substance: DOXYCYCLINE
  19. AMOXICILLIN + CLAV. POTASSIUM [Concomitant]
     Active Substance: AMOXICILLIN\CLAVULANATE POTASSIUM
  20. PREDNISONE. [Concomitant]
     Active Substance: PREDNISONE

REACTIONS (5)
  - Troponin increased [Recovered/Resolved]
  - Product dose omission [Unknown]
  - Chest pain [Recovered/Resolved]
  - Pneumonia [Unknown]
  - Cardiac disorder [Unknown]

NARRATIVE: CASE EVENT DATE: 20190901
